FAERS Safety Report 10055725 (Version 1)
Quarter: 2014Q2

REPORT INFORMATION
  Report Type: Spontaneous
  Country: FR (occurrence: FR)
  Receive Date: 20140403
  Receipt Date: 20140403
  Transmission Date: 20141212
  Serious: Yes (Hospitalization, Other)
  Sender: FDA-Public Use
  Company Number: FR-ELI_LILLY_AND_COMPANY-FR201403008796

PATIENT
  Age: 89 Year
  Sex: Female

DRUGS (1)
  1. ZYPREXA [Suspect]
     Indication: BIPOLAR DISORDER
     Dosage: 5 MG, QD
     Route: 048
     Dates: start: 2009

REACTIONS (5)
  - Lung disorder [Unknown]
  - Cardiac failure [Unknown]
  - Acute respiratory distress syndrome [Unknown]
  - Haematemesis [Unknown]
  - Constipation [Unknown]
